FAERS Safety Report 5871384-2 (Version None)
Quarter: 2008Q3

REPORT INFORMATION
  Report Type: 
  Country: None (occurrence: None)
  Receive Date: 20080904
  Receipt Date: 20080904
  Transmission Date: 20090109
  Serious: No
  Sender: FDA-Public Use
  Company Number: None

PATIENT
  Age: 57 Year
  Sex: Male

DRUGS (2)
  1. PIPERACILLIN AND TAZOBACTAM [Suspect]
     Dosage: IV
     Route: 042
     Dates: start: 20080620, end: 20080625
  2. VANCOMYCIN HYDROCHLORIDE [Suspect]
     Dosage: IV
     Route: 042
     Dates: start: 20080620, end: 20080625

REACTIONS (6)
  - DIALYSIS [None]
  - DRUG HYPERSENSITIVITY [None]
  - IDIOSYNCRATIC DRUG REACTION [None]
  - NEPHRITIS INTERSTITIAL [None]
  - RENAL FAILURE ACUTE [None]
  - RENAL TUBULAR DISORDER [None]
